FAERS Safety Report 5099730-0 (Version None)
Quarter: 2006Q3

REPORT INFORMATION
  Report Type: 
  Country: None (occurrence: None)
  Receive Date: 20060908
  Receipt Date: 20060825
  Transmission Date: 20061208
  Serious: Yes (Life-Threatening, Hospitalization, Disabling)
  Sender: FDA-Public Use
  Company Number: JP-JPN-A200603341

PATIENT
  Age: 77 Year
  Sex: Male

DRUGS (17)
  1. PAXIL [Suspect]
     Indication: PANIC DISORDER
     Dosage: 10MG PER DAY
     Route: 048
     Dates: start: 20041001, end: 20060820
  2. ROHYPNOL [Suspect]
     Indication: INSOMNIA
     Route: 048
     Dates: start: 20031001, end: 20060820
  3. MEILAX [Concomitant]
     Route: 048
     Dates: start: 20031001
  4. LENDORMIN [Concomitant]
     Dosage: 1 PER DAY
     Route: 048
     Dates: start: 20040901
  5. RONLAX [Concomitant]
     Indication: ANXIETY
     Route: 048
     Dates: start: 20031001, end: 20060820
  6. ATARAX [Concomitant]
     Indication: INSOMNIA
     Route: 048
     Dates: end: 20060820
  7. LEDOLPER [Concomitant]
     Indication: INSOMNIA
     Route: 048
     Dates: start: 20040901, end: 20060820
  8. GASOAL [Concomitant]
     Indication: ABDOMINAL DISTENSION
     Route: 048
     Dates: end: 20060820
  9. MAGLAX [Concomitant]
     Indication: CONSTIPATION
     Route: 048
     Dates: end: 20060820
  10. SENNOSIDE [Concomitant]
     Indication: CONSTIPATION
     Route: 048
     Dates: end: 20060820
  11. CYTOTEC [Concomitant]
     Indication: GASTRIC ULCER
     Dates: end: 20060820
  12. ALLELOCK [Concomitant]
     Indication: PRURITUS
     Route: 048
     Dates: end: 20060820
  13. NABOAL [Concomitant]
     Indication: BACK PAIN
     Route: 062
     Dates: end: 20060820
  14. NERISONA [Concomitant]
     Indication: PRURITUS
     Route: 062
     Dates: end: 20060820
  15. EURAX [Concomitant]
     Indication: PRURITUS
     Route: 062
     Dates: end: 20060820
  16. FLUNITRAZEPAM [Concomitant]
  17. BROTIZOLAM [Concomitant]

REACTIONS (10)
  - ABSCESS [None]
  - BLOOD GLUCOSE DECREASED [None]
  - CONVULSION [None]
  - DISSEMINATED INTRAVASCULAR COAGULATION [None]
  - DYSPNOEA [None]
  - FALL [None]
  - FEELING HOT [None]
  - MUSCULAR WEAKNESS [None]
  - RENAL FAILURE [None]
  - RHABDOMYOLYSIS [None]
